FAERS Safety Report 15027335 (Version 2)
Quarter: 2023Q1

REPORT INFORMATION
  Report Type: Spontaneous
  Country: IT (occurrence: IT)
  Receive Date: 20180619
  Receipt Date: 20230121
  Transmission Date: 20230418
  Serious: Yes (Life-Threatening, Hospitalization)
  Sender: FDA-Public Use
  Company Number: IT-AUROBINDO-AUR-APL-2018-031485

PATIENT
  Age: 70 Year
  Sex: Male

DRUGS (3)
  1. ALPRAZOLAM [Suspect]
     Active Substance: ALPRAZOLAM
     Indication: Insomnia
     Dosage: 0.5 MILLIGRAM, ONCE A DAY, ONE PILL AT NIGHT
     Route: 048
  2. ALPRAZOLAM [Suspect]
     Active Substance: ALPRAZOLAM
     Dosage: 45 DOSAGE FORM, ONCE A DAY, INGESTED ABOUT 45 PILLS IN AN OVERDOSE
     Route: 048
  3. ZOLPIDEM [Concomitant]
     Active Substance: ZOLPIDEM TARTRATE
     Indication: Anxiety
     Dosage: 10 MILLIGRAM, ONCE A DAY
     Route: 065

REACTIONS (11)
  - Dehydration [Recovering/Resolving]
  - Vomiting [Recovered/Resolved]
  - Brachial plexus injury [Recovering/Resolving]
  - Pulmonary embolism [Recovering/Resolving]
  - Renal impairment [Recovering/Resolving]
  - Coma [Recovered/Resolved]
  - Hallucination [Recovered/Resolved]
  - Suicide attempt [Recovered/Resolved]
  - Decubitus ulcer [Recovering/Resolving]
  - Intentional overdose [Recovered/Resolved]
  - Delusion [Recovered/Resolved]
